FAERS Safety Report 6418968-0 (Version None)
Quarter: 2009Q4

REPORT INFORMATION
  Report Type: 
  Country: None (occurrence: None)
  Receive Date: 20091029
  Receipt Date: 20091019
  Transmission Date: 20100525
  Serious: Yes (Other)
  Sender: FDA-Public Use
  Company Number: US-BAYER-200930969NA

PATIENT
  Age: 27 Year
  Sex: Female
  Weight: 88 kg

DRUGS (1)
  1. MIRENA [Suspect]
     Indication: CONTRACEPTION
     Dosage: CONTINUOUS
     Route: 015
     Dates: start: 20070521, end: 20090811

REACTIONS (6)
  - ABDOMINAL PAIN LOWER [None]
  - ABORTION SPONTANEOUS INCOMPLETE [None]
  - COITAL BLEEDING [None]
  - DYSPAREUNIA [None]
  - PREGNANCY WITH CONTRACEPTIVE DEVICE [None]
  - VAGINAL HAEMORRHAGE [None]
